FAERS Safety Report 23468089 (Version 2)
Quarter: 2024Q1

REPORT INFORMATION
  Report Type: Report from Study
  Country: RO (occurrence: RO)
  Receive Date: 20240201
  Receipt Date: 20240202
  Transmission Date: 20240409
  Serious: Yes (Death, Hospitalization)
  Sender: FDA-Public Use
  Company Number: RO-ABBVIE-5613935

PATIENT
  Age: 64 Year
  Sex: Male

DRUGS (2)
  1. CARBIDOPA\LEVODOPA [Suspect]
     Active Substance: CARBIDOPA\LEVODOPA
     Indication: Parkinson^s disease
     Dosage: DM=13.00 DC=3.60 ED=1.80 NRED=0; DMN=0.00 DCN=0.00 EDN=0.00 NREDN=0
     Route: 050
     Dates: start: 20201016, end: 20240129
  2. CARBIDOPA\LEVODOPA [Suspect]
     Active Substance: CARBIDOPA\LEVODOPA

REACTIONS (4)
  - Cardiac arrest [Fatal]
  - Cholecystitis [Not Recovered/Not Resolved]
  - Anaemia [Not Recovered/Not Resolved]
  - Thrombocytopenia [Not Recovered/Not Resolved]

NARRATIVE: CASE EVENT DATE: 20240125
